FAERS Safety Report 19472995 (Version 2)
Quarter: 2021Q3

REPORT INFORMATION
  Report Type: Spontaneous
  Country: GB (occurrence: GB)
  Receive Date: 20210629
  Receipt Date: 20210708
  Transmission Date: 20211014
  Serious: Yes (Other)
  Sender: FDA-Public Use
  Company Number: GB-SA-2021SA206169

PATIENT
  Age: 63 Year
  Sex: Male

DRUGS (1)
  1. TOUJEO DOUBLESTAR [Suspect]
     Active Substance: INSULIN GLARGINE
     Indication: TYPE 3 DIABETES MELLITUS
     Dosage: UNK
     Route: 065

REACTIONS (3)
  - Fluid retention [Unknown]
  - Renal impairment [Unknown]
  - Diabetes mellitus inadequate control [Unknown]
